FAERS Safety Report 9282356 (Version 3)
Quarter: 2013Q2

REPORT INFORMATION
  Report Type: Report from Study
  Country: SG (occurrence: SG)
  Receive Date: 20130510
  Receipt Date: 20130522
  Transmission Date: 20140414
  Serious: Yes (Hospitalization)
  Sender: FDA-Public Use
  Company Number: SG-PFIZER INC-2013122788

PATIENT
  Age: 58 Year
  Sex: Male
  Weight: 78.1 kg

DRUGS (9)
  1. TOFACITINIB CITRATE [Suspect]
     Indication: PSORIASIS
     Dosage: 10 MG, 2X/DAY
     Route: 048
     Dates: start: 20121029, end: 20130416
  2. TOFACITINIB CITRATE [Suspect]
     Dosage: 5 MG, 2X/DAY
     Route: 048
     Dates: start: 20130417, end: 20130417
  3. TELMISARTAN [Concomitant]
     Indication: HYPERTENSION
     Dosage: 40 MG EVERY MORNING
     Route: 048
     Dates: start: 2008
  4. GALVAS MET [Concomitant]
     Indication: DIABETES MELLITUS
     Dosage: 1 TABLET (VILDAGLIPTIN 50MG/METFORMIN 800MG), 2X/DAY
     Route: 048
     Dates: start: 201105
  5. SULPIRIDE [Concomitant]
     Indication: DEPRESSION
     Dosage: 400MG EVERY NIGHT
     Route: 048
     Dates: start: 20081008
  6. FLUOXETINE [Concomitant]
     Indication: DEPRESSION
     Dosage: 20MG EVERY MORNING
     Route: 048
     Dates: start: 20090311
  7. VALPROATE SODIUM [Concomitant]
     Indication: DEPRESSION
     Dosage: 200MG EVERY NIGHT
     Route: 048
     Dates: start: 20090727
  8. VYTORIN [Concomitant]
     Indication: HYPERLIPIDAEMIA
     Dosage: HALF TABLET EVERY NIGHT
     Route: 048
     Dates: start: 201105
  9. GAVISCON [Concomitant]
     Indication: GASTROOESOPHAGEAL REFLUX DISEASE
     Dosage: 10  ML, 3X/DAY
     Route: 048
     Dates: start: 20121225

REACTIONS (1)
  - Cholecystitis [Recovered/Resolved]
